FAERS Safety Report 6020680-7 (Version None)
Quarter: 2008Q4

REPORT INFORMATION
  Report Type: 
  Country: None (occurrence: None)
  Receive Date: 20081222
  Receipt Date: 20081206
  Transmission Date: 20090506
  Serious: Yes (Hospitalization)
  Sender: FDA-Public Use
  Company Number: 8040318

PATIENT
  Age: 21 Month
  Sex: Female
  Weight: 8.7 kg

DRUGS (4)
  1. KEPPRA [Suspect]
     Indication: MYOCLONUS
     Dosage: 50 MG 2/D PO
     Route: 048
     Dates: start: 20081201
  2. FORLAX [Concomitant]
  3. EFFERALGAN /00020001/ [Concomitant]
  4. CODENFAN [Concomitant]

REACTIONS (3)
  - ANOREXIA [None]
  - MUSCLE SPASMS [None]
  - WEIGHT DECREASED [None]
